FAERS Safety Report 16760864 (Version 1)
Quarter: 2019Q3

REPORT INFORMATION
  Report Type: Report from Study
  Country: AU (occurrence: AU)
  Receive Date: 20190830
  Receipt Date: 20190830
  Transmission Date: 20191005
  Serious: Yes (Other)
  Sender: FDA-Public Use
  Company Number: AU-TAKEDA-2019TUS050215

PATIENT
  Age: 21 Year
  Sex: Female

DRUGS (1)
  1. BORTEZOMIB. [Suspect]
     Active Substance: BORTEZOMIB
     Indication: TRANSPLANT REJECTION
     Dosage: 1.75 MILLIGRAM, BID
     Route: 058

REACTIONS (4)
  - Transplant dysfunction [Unknown]
  - Off label use [Unknown]
  - Product use in unapproved indication [Unknown]
  - Donor specific antibody present [Unknown]

NARRATIVE: CASE EVENT DATE: 201907
